FAERS Safety Report 7564973-0 (Version None)
Quarter: 2011Q2

REPORT INFORMATION
  Report Type: 
  Country: None (occurrence: None)
  Receive Date: 20110622
  Receipt Date: 20110310
  Transmission Date: 20111010
  Serious: Yes (Other)
  Sender: FDA-Public Use
  Company Number: US-MYLANLABS-2011S1004671

PATIENT
  Age: 62 Year
  Sex: Female

DRUGS (10)
  1. CLOZAPINE [Suspect]
     Route: 048
     Dates: end: 20110309
  2. SYNTHROID [Concomitant]
  3. WARFARIN SODIUM [Concomitant]
  4. PAXIL [Concomitant]
  5. OSCAL /00108001/ [Concomitant]
  6. VITAMIN D [Concomitant]
  7. CLOZAPINE [Suspect]
     Indication: SCHIZOPHRENIA, PARANOID TYPE
     Route: 048
     Dates: end: 20110309
  8. SENNA PLUS /00142201/ [Concomitant]
  9. CLOZAPINE [Suspect]
     Route: 048
     Dates: end: 20110309
  10. PRILOSEC [Concomitant]

REACTIONS (2)
  - GRANULOCYTOPENIA [None]
  - LEUKOPENIA [None]
